FAERS Safety Report 4948556-4 (Version None)
Quarter: 2006Q1

REPORT INFORMATION
  Report Type: 
  Country: None (occurrence: None)
  Receive Date: 20060320
  Receipt Date: 20060202
  Transmission Date: 20060701
  Serious: Yes (Hospitalization)
  Sender: FDA-Public Use
  Company Number: JP-MERCK-0602USA02034

PATIENT
  Age: 79 Year
  Sex: Male

DRUGS (5)
  1. PEPCID RPD [Suspect]
     Indication: REFLUX OESOPHAGITIS
     Route: 048
     Dates: start: 20030228, end: 20050816
  2. PEPCID RPD [Suspect]
     Route: 048
     Dates: start: 20050830, end: 20060131
  3. COZAAR [Concomitant]
     Route: 048
     Dates: start: 20050823, end: 20060131
  4. MUCOSTA [Concomitant]
     Route: 048
     Dates: start: 20030228, end: 20060131
  5. LANSOPRAZOLE [Concomitant]
     Indication: REFLUX OESOPHAGITIS
     Route: 048
     Dates: start: 20030128, end: 20030228

REACTIONS (5)
  - APLASTIC ANAEMIA [None]
  - DYSPNOEA [None]
  - HAEMOLYTIC ANAEMIA [None]
  - PALPITATIONS [None]
  - PANCYTOPENIA [None]
